FAERS Safety Report 12860383 (Version 2)
Quarter: 2016Q4

REPORT INFORMATION
  Report Type: Spontaneous
  Country: CA (occurrence: CA)
  Receive Date: 20161019
  Receipt Date: 20161115
  Transmission Date: 20170207
  Serious: Yes (Other)
  Sender: FDA-Public Use
  Company Number: CA-PFIZER INC-2016478261

PATIENT
  Age: 73 Year
  Sex: Female

DRUGS (2)
  1. ASPIRIN /00002701/ [Concomitant]
     Active Substance: ASPIRIN
     Dosage: 81 MG, DAILY
  2. ADVIL [Suspect]
     Active Substance: IBUPROFEN
     Indication: BACK PAIN
     Dosage: ONCE A DAY OR MAYBE EVERY OTHER DAY AS NEEDED, TOTAL OF 9
     Dates: start: 201609, end: 201610

REACTIONS (5)
  - Abdominal distension [Recovered/Resolved]
  - Coeliac disease [Recovered/Resolved]
  - Feeling abnormal [Recovered/Resolved]
  - Fatigue [Recovered/Resolved]
  - Gastrooesophageal reflux disease [Recovered/Resolved]

NARRATIVE: CASE EVENT DATE: 201609
